FAERS Safety Report 17769311 (Version 3)
Quarter: 2020Q3

REPORT INFORMATION
  Report Type: Spontaneous
  Country: US (occurrence: US)
  Receive Date: 20200512
  Receipt Date: 20200707
  Transmission Date: 20201102
  Serious: Yes (Death, Hospitalization, Other)
  Sender: FDA-Public Use
  Company Number: US-009507513-2005USA002819

PATIENT
  Sex: Female
  Weight: 37.64 kg

DRUGS (3)
  1. ASPIRIN. [Suspect]
     Active Substance: ASPIRIN
  2. JANUVIA [Suspect]
     Active Substance: SITAGLIPTIN PHOSPHATE
     Indication: TYPE 2 DIABETES MELLITUS
     Dosage: ONCE DAILY
     Route: 048
     Dates: start: 20141222, end: 201702
  3. REQUIP [Concomitant]
     Active Substance: ROPINIROLE HYDROCHLORIDE
     Dosage: 1 DOSAGE FORM, HS
     Route: 048
     Dates: start: 20141222

REACTIONS (25)
  - Hepatic function abnormal [Unknown]
  - Cataract [Unknown]
  - Cholesterosis [Unknown]
  - Fistula of small intestine [Recovering/Resolving]
  - Jejunal perforation [Recovering/Resolving]
  - Death [Fatal]
  - Uterine leiomyoma [Unknown]
  - Cholecystitis chronic [Unknown]
  - Spinal osteoarthritis [Unknown]
  - Dehydration [Unknown]
  - Jejunal ulcer [Recovering/Resolving]
  - Pulmonary mass [Unknown]
  - Hypotension [Unknown]
  - Hyperplastic cholecystopathy [Unknown]
  - Pancreatic carcinoma [Unknown]
  - Device dislocation [Unknown]
  - Tonsillectomy [Unknown]
  - Drug hypersensitivity [Unknown]
  - Hiatus hernia [Unknown]
  - Neuropathy peripheral [Unknown]
  - Enterocolitis bacterial [Unknown]
  - Clostridium difficile infection [Unknown]
  - Uterine cyst [Unknown]
  - Spondylolisthesis [Unknown]
  - Anaemia [Unknown]

NARRATIVE: CASE EVENT DATE: 2015
